FAERS Safety Report 10403720 (Version 3)
Quarter: 2015Q3

REPORT INFORMATION
  Report Type: Report from Study
  Country: US (occurrence: US)
  Receive Date: 20140822
  Receipt Date: 20150901
  Transmission Date: 20151125
  Serious: Yes (Death, Hospitalization, Other)
  Sender: FDA-Public Use
  Company Number: US-ACTELION-A-NJ2014-103879

PATIENT
  Age: 56 Year
  Sex: Female

DRUGS (4)
  1. TRACLEER [Suspect]
     Active Substance: BOSENTAN
     Indication: PULMONARY ARTERIAL HYPERTENSION
     Dosage: UNK
     Route: 048
  2. REMODULIN [Concomitant]
     Active Substance: TREPROSTINIL
  3. COUMADIN [Concomitant]
     Active Substance: WARFARIN SODIUM
  4. OPSUMIT [Suspect]
     Active Substance: MACITENTAN
     Indication: PULMONARY ARTERIAL HYPERTENSION
     Dosage: 10 MG, UNK
     Route: 048

REACTIONS (3)
  - Death [Fatal]
  - Lower limb fracture [Unknown]
  - Hip fracture [Unknown]

NARRATIVE: CASE EVENT DATE: 201403
